FAERS Safety Report 18432103 (Version 1)
Quarter: 2020Q4

REPORT INFORMATION
  Report Type: Spontaneous
  Country: US (occurrence: US)
  Receive Date: 20201027
  Receipt Date: 20201027
  Transmission Date: 20210114
  Serious: Yes (Other)
  Sender: FDA-Public Use
  Company Number: None

PATIENT
  Age: 18 Year
  Sex: Male
  Weight: 74.25 kg

DRUGS (21)
  1. SYMDEKO [Suspect]
     Active Substance: IVACAFTOR\TEZACAFTOR
     Indication: CYSTIC FIBROSIS
     Dates: start: 20180801, end: 20191128
  2. ZONISAMIDE. [Concomitant]
     Active Substance: ZONISAMIDE
  3. N-ACETYL CYSTEINE [Concomitant]
     Active Substance: ACETYLCYSTEINE
  4. LITHIUM OROTATE [Concomitant]
     Active Substance: LITHIUM OROTATE
  5. XOPENEX [Concomitant]
     Active Substance: LEVALBUTEROL HYDROCHLORIDE
  6. NEBULIZER COMPRESSOR AND CUPS/MASK [Concomitant]
  7. MELATONIN [Concomitant]
     Active Substance: MELATONIN
  8. PANCREAZE [Concomitant]
     Active Substance: PANCRELIPASE AMYLASE\PANCRELIPASE LIPASE\PANCRELIPASE PROTEASE
  9. HYPERTONIC SALINE [Concomitant]
     Active Substance: SODIUM CHLORIDE
  10. VITAMIN K [Concomitant]
     Active Substance: PHYTONADIONE
  11. EPIDIOLEX [Concomitant]
     Active Substance: CANNABIDIOL
  12. PULMOZYME [Concomitant]
     Active Substance: DORNASE ALFA
  13. HILL-ROMM MONARCH VEST [Concomitant]
  14. NALTREXONE [Concomitant]
     Active Substance: NALTREXONE
  15. ELECTROLYTE SUPPLEMENT [Concomitant]
  16. VITAMIN D [Concomitant]
     Active Substance: VITAMIN D NOS
  17. MULTIVITAMIN [Concomitant]
     Active Substance: VITAMINS
  18. TOBRAMYCIN. [Concomitant]
     Active Substance: TOBRAMYCIN
  19. FOLATE [Concomitant]
     Active Substance: FOLATE SODIUM
  20. HAWTHORN BERRY [Concomitant]
  21. FISH OIL [Concomitant]
     Active Substance: FISH OIL

REACTIONS (3)
  - Aggression [None]
  - Depressed mood [None]
  - Seizure [None]

NARRATIVE: CASE EVENT DATE: 20190214
